FAERS Safety Report 10657504 (Version 1)
Quarter: 2014Q4

REPORT INFORMATION
  Report Type: Spontaneous
  Country: CA (occurrence: None)
  Receive Date: 20141215
  Receipt Date: 20141215
  Transmission Date: 20150529
  Serious: Yes (Death)
  Sender: FDA-Public Use
  Company Number: A1089298A

PATIENT
  Age: 18 Year
  Sex: Male

DRUGS (1)
  1. PAROXETINE HYDROCHLORIDE. [Suspect]
     Active Substance: PAROXETINE HYDROCHLORIDE
     Indication: ILL-DEFINED DISORDER

REACTIONS (4)
  - Brain oedema [None]
  - Death [None]
  - Hepatotoxicity [None]
  - Acute hepatic failure [None]
